FAERS Safety Report 8108134-5 (Version None)
Quarter: 2012Q1

REPORT INFORMATION
  Report Type: 
  Country: None (occurrence: None)
  Receive Date: 20120202
  Receipt Date: 20120130
  Transmission Date: 20120608
  Serious: Yes (Congenital Anomaly, Other)
  Sender: FDA-Public Use
  Company Number: US-PFIZER INC-2011162134

PATIENT
  Sex: Female
  Weight: 3 kg

DRUGS (4)
  1. MULTI-VITAMINS [Concomitant]
     Dosage: UNK
     Route: 064
     Dates: start: 20040823
  2. VALTREX [Concomitant]
     Indication: HERPES SIMPLEX
     Dosage: 500 MG, UNK
     Route: 064
     Dates: start: 20050208
  3. ZOLOFT [Suspect]
     Indication: EMOTIONAL DISORDER
     Dosage: 50MG TABLETS PER ORAL AT BEDTIME
     Route: 064
     Dates: start: 20040112
  4. FERROUS SULFATE [Concomitant]
     Dosage: 325 MG, UNK
     Route: 064
     Dates: start: 20040823

REACTIONS (5)
  - LIMB MALFORMATION [None]
  - JAUNDICE NEONATAL [None]
  - MATERNAL EXPOSURE TIMING UNSPECIFIED [None]
  - HAND AMPUTATION [None]
  - AMNIOTIC BAND SYNDROME [None]
